FAERS Safety Report 23310549 (Version 2)
Quarter: 2024Q1

REPORT INFORMATION
  Report Type: Spontaneous
  Country: CH (occurrence: CH)
  Receive Date: 20231218
  Receipt Date: 20240105
  Transmission Date: 20240409
  Serious: Yes (Death, Other)
  Sender: FDA-Public Use
  Company Number: CH-SA-SAC20231212001206

PATIENT
  Age: 73 Year
  Sex: Female

DRUGS (6)
  1. LIBTAYO [Suspect]
     Active Substance: CEMIPLIMAB-RWLC
     Indication: Basal cell carcinoma
     Dosage: 350 MG, Q3W (INFUSIONS RECEIVED IN EACH CASE ON: 13-MAY-2022 30-MAY-2022 23-JUN- 2022 14-JUL-2022 04
     Route: 042
     Dates: start: 20220513, end: 20220825
  2. CITALOPRAM [Concomitant]
     Active Substance: CITALOPRAM HYDROBROMIDE
     Indication: Depression
     Dosage: 20 MG
     Route: 048
     Dates: start: 201701, end: 202305
  3. ZOLPIDEM TARTRATE [Concomitant]
     Active Substance: ZOLPIDEM TARTRATE
     Indication: Sleep disorder
     Dosage: 10 MG
     Route: 048
     Dates: start: 202111, end: 202305
  4. EUTHYROX [Concomitant]
     Active Substance: LEVOTHYROXINE SODIUM
     Indication: Hypothyroidism
     Dosage: 75 MICROGRAM
     Route: 048
     Dates: start: 1990, end: 202210
  5. PANTOPRAZOLE [Concomitant]
     Active Substance: PANTOPRAZOLE
     Indication: Gastrooesophageal reflux disease
     Dosage: 40 MG
     Route: 048
     Dates: start: 201611, end: 202305
  6. ASPIRIN [Concomitant]
     Active Substance: ASPIRIN
     Indication: Coronary artery disease
     Dosage: 100 MG
     Route: 048
     Dates: start: 201808, end: 202305

REACTIONS (9)
  - Malnutrition [Fatal]
  - Circulatory collapse [Fatal]
  - Cachexia [Fatal]
  - Sarcopenia [Fatal]
  - Decreased appetite [Fatal]
  - Nausea [Fatal]
  - Vomiting [Fatal]
  - Tongue discomfort [Fatal]
  - Asthenia [Fatal]
